FAERS Safety Report 13094633 (Version 1)
Quarter: 2017Q1

REPORT INFORMATION
  Report Type: Spontaneous
  Country: US (occurrence: US)
  Receive Date: 20170106
  Receipt Date: 20170106
  Transmission Date: 20170428
  Serious: Yes (Hospitalization)
  Sender: FDA-Public Use
  Company Number: US-ELI_LILLY_AND_COMPANY-US201607013663

PATIENT
  Sex: Female

DRUGS (5)
  1. CYMBALTA [Suspect]
     Active Substance: DULOXETINE HYDROCHLORIDE
     Dosage: 60 MG, QD
     Route: 065
     Dates: start: 20110503
  2. CYMBALTA [Suspect]
     Active Substance: DULOXETINE HYDROCHLORIDE
     Dosage: 90 MG, QD
     Route: 065
     Dates: start: 20130313
  3. CYMBALTA [Suspect]
     Active Substance: DULOXETINE HYDROCHLORIDE
     Indication: PRODUCT USED FOR UNKNOWN INDICATION
     Dosage: UNK, UNKNOWN
     Route: 065
  4. CYMBALTA [Suspect]
     Active Substance: DULOXETINE HYDROCHLORIDE
     Dosage: 120 MG, QD
     Route: 065
     Dates: start: 20131014
  5. CYMBALTA [Suspect]
     Active Substance: DULOXETINE HYDROCHLORIDE
     Dosage: 120 MG, QD
     Route: 065
     Dates: start: 20140115

REACTIONS (16)
  - Decreased interest [Recovered/Resolved]
  - Fatigue [Unknown]
  - Irritability [Unknown]
  - Depression [Recovered/Resolved]
  - Insomnia [Recovered/Resolved]
  - Diarrhoea [Unknown]
  - Headache [Unknown]
  - Nervousness [Recovered/Resolved]
  - Suicidal ideation [Recovered/Resolved]
  - Drug withdrawal syndrome [Unknown]
  - Hyperhidrosis [Unknown]
  - Hallucination, visual [Recovered/Resolved]
  - Paraesthesia [Unknown]
  - Hallucination, auditory [Recovered/Resolved]
  - Tremor [Recovered/Resolved]
  - Agitation [Unknown]
